FAERS Safety Report 6250097-1 (Version None)
Quarter: 2009Q2

REPORT INFORMATION
  Report Type: 
  Country: None (occurrence: None)
  Receive Date: 20090626
  Receipt Date: 20090610
  Transmission Date: 20091009
  Serious: Yes (Death)
  Sender: FDA-Public Use
  Company Number: 2009S1000032

PATIENT
  Age: 37 Year
  Sex: Female

DRUGS (1)
  1. INOMAX [Suspect]
     Indication: VASCULAR TEST
     Dosage: 10 PPM;CONT;INH ; 20 PPM;CONT;INH ; 40 PPM;CONT;INH ; 80 PPM;CONT;INH
     Route: 055

REACTIONS (1)
  - CARDIAC ARREST [None]
